FAERS Safety Report 11955917 (Version 1)
Quarter: 2016Q1

REPORT INFORMATION
  Report Type: Report from Study
  Country: US (occurrence: US)
  Receive Date: 20160126
  Receipt Date: 20160126
  Transmission Date: 20160526
  Serious: No
  Sender: FDA-Public Use
  Company Number: US-ABBVIE-15K-163-1367142-00

PATIENT
  Age: 44 Year
  Sex: Female

DRUGS (4)
  1. HUMIRA [Suspect]
     Active Substance: ADALIMUMAB
     Indication: PSORIASIS
     Dosage: INJECTED TWO PENS ON DAY ONE
     Route: 058
     Dates: start: 20150310, end: 20150310
  2. HUMIRA [Suspect]
     Active Substance: ADALIMUMAB
     Dosage: ONE PEN ON DAY EIGHT
     Route: 058
     Dates: start: 20150317, end: 20150317
  3. HUMIRA [Suspect]
     Active Substance: ADALIMUMAB
     Dosage: ONE PEN EVERY OTHER WEEK
     Route: 058
  4. HUMIRA [Suspect]
     Active Substance: ADALIMUMAB
     Dosage: ONE PEN ON DAY TWENTY TWO
     Route: 058

REACTIONS (1)
  - Fatigue [Unknown]
